FAERS Safety Report 13441142 (Version 1)
Quarter: 2017Q2

REPORT INFORMATION
  Report Type: Spontaneous
  Country: US (occurrence: US)
  Receive Date: 20170413
  Receipt Date: 20170413
  Transmission Date: 20170830
  Serious: Yes (Hospitalization)
  Sender: FDA-Public Use
  Company Number: PHHY2017US054116

PATIENT
  Age: 23 Year
  Sex: Female

DRUGS (6)
  1. DIVALPROEX SODIUM. [Suspect]
     Active Substance: DIVALPROEX SODIUM
     Indication: SUICIDAL IDEATION
     Dosage: 1500 MG, QD
     Route: 065
  2. LURASIDONE [Suspect]
     Active Substance: LURASIDONE
     Dosage: 80 MG, QD, FOR 2 DAYS
     Route: 065
  3. DIVALPROEX SODIUM. [Suspect]
     Active Substance: DIVALPROEX SODIUM
     Indication: MOOD ALTERED
  4. DIVALPROEX SODIUM. [Suspect]
     Active Substance: DIVALPROEX SODIUM
     Indication: AGITATION
  5. LURASIDONE [Suspect]
     Active Substance: LURASIDONE
     Indication: BIPOLAR DISORDER
     Dosage: 40 MG, QD
     Route: 065
  6. ARIPIPRAZOLE. [Concomitant]
     Active Substance: ARIPIPRAZOLE
     Indication: PRODUCT USED FOR UNKNOWN INDICATION
     Route: 065

REACTIONS (3)
  - Mania [Recovered/Resolved]
  - Psychotic disorder [Recovered/Resolved]
  - Delusion [Recovered/Resolved]
